FAERS Safety Report 9514723 (Version 3)
Quarter: 2014Q2

REPORT INFORMATION
  Report Type: Spontaneous
  Country: US (occurrence: US)
  Receive Date: 20130911
  Receipt Date: 20140422
  Transmission Date: 20141212
  Serious: Yes (Hospitalization, Other)
  Sender: FDA-Public Use
  Company Number: US-AMGEN-USASP2013062745

PATIENT
  Age: 66 Year
  Sex: Female
  Weight: 73.47 kg

DRUGS (6)
  1. ENBREL [Suspect]
     Indication: RHEUMATOID ARTHRITIS
     Dosage: 50 MG, WEEKLY
     Route: 065
     Dates: start: 20110601, end: 201209
  2. PHENERGAN                          /00033001/ [Concomitant]
     Indication: NAUSEA
     Dosage: 12.5 MG, AS NECESSARY ( EVERY 4 TO 6 HOURS)
     Route: 048
  3. PHENERGAN                          /00033001/ [Concomitant]
     Indication: VOMITING
     Dosage: 12.5 MG, AS NECESSARY
     Route: 048
  4. NORCO [Concomitant]
     Indication: PAIN
     Dosage: EVERY 4 HOURS
     Route: 048
  5. NORCO [Concomitant]
     Dosage: 10/335, AS NECESSARY (EVERY 4 HOURS)
     Route: 048
  6. IMODIUM [Concomitant]
     Dosage: UNK

REACTIONS (5)
  - Adenocarcinoma of colon [Unknown]
  - Rectal cancer [Recovered/Resolved]
  - Rectal polyp [Unknown]
  - Diverticulum intestinal [Unknown]
  - Osteoarthritis [Unknown]
